FAERS Safety Report 8871289 (Version 1)
Quarter: 2012Q4

REPORT INFORMATION
  Report Type: 
  Country: DK (occurrence: DK)
  Receive Date: 20121029
  Receipt Date: 20121029
  Transmission Date: 20130627
  Serious: Yes (Hospitalization)
  Sender: FDA-Public Use
  Company Number: DK-MUTUAL PHARMACEUTICAL COMPANY, INC.-IBPF20120005

PATIENT
  Age: 39 Year
  Sex: Male

DRUGS (2)
  1. IBUPROFEN [Suspect]
     Indication: BACK PAIN
     Route: 065
     Dates: start: 200904
  2. DICLOFENAC [Suspect]
     Indication: BACK PAIN
     Route: 065
     Dates: start: 200904

REACTIONS (17)
  - Nasal polyps [Unknown]
  - Lung disorder [Unknown]
  - Nasal congestion [Unknown]
  - Anosmia [Unknown]
  - Sinus polyp [Unknown]
  - Sinus polyp [Unknown]
  - Bone erosion [Unknown]
  - Abdominal tenderness [Unknown]
  - Inflammation [Unknown]
  - Malaise [Unknown]
  - Gastric ulcer [Unknown]
  - Hypersensitivity [Unknown]
  - Asthma [Unknown]
  - Dyspepsia [Unknown]
  - Eosinophilia [Unknown]
  - Abdominal discomfort [Unknown]
  - Vomiting [Unknown]
